FAERS Safety Report 20339613 (Version 1)
Quarter: 2022Q1

REPORT INFORMATION
  Report Type: Report from Study
  Country: MX (occurrence: MX)
  Receive Date: 20220117
  Receipt Date: 20220117
  Transmission Date: 20220423
  Serious: Yes (Hospitalization, Other)
  Sender: FDA-Public Use
  Company Number: MX-SA-SAC20220112000610

PATIENT
  Age: 72 Year
  Sex: Female

DRUGS (1)
  1. INSULIN GLARGINE [Suspect]
     Active Substance: INSULIN GLARGINE
     Dosage: UNK
     Route: 058
     Dates: start: 20210823

REACTIONS (4)
  - Fall [Unknown]
  - Hip surgery [Unknown]
  - Haemodialysis [Unknown]
  - Abdominal mass [Unknown]

NARRATIVE: CASE EVENT DATE: 20211208
